FAERS Safety Report 8571539-2 (Version None)
Quarter: 2012Q3

REPORT INFORMATION
  Report Type: 
  Country: None (occurrence: None)
  Receive Date: 20120806
  Receipt Date: 20120730
  Transmission Date: 20120928
  Serious: Yes (Other)
  Sender: FDA-Public Use
  Company Number: PHHY2010JP41962

PATIENT
  Sex: Female
  Weight: 50 kg

DRUGS (44)
  1. CLOZAPINE [Suspect]
     Dosage: 200 MG, QD
     Route: 048
     Dates: start: 20100329
  2. CLOZAPINE [Suspect]
     Dosage: 300 MG, QD
     Route: 048
     Dates: start: 20100409
  3. BLONANSERIN [Concomitant]
     Dosage: 24 MG, UNK
     Route: 048
     Dates: start: 20100301
  4. NITRAZEPAM [Concomitant]
     Dosage: 15 MG, UNK
     Route: 048
     Dates: end: 20100806
  5. QUETIAPINE FUMARATE [Concomitant]
     Dosage: 200 MG, UNK
     Route: 048
  6. QUETIAPINE FUMARATE [Concomitant]
     Dosage: 250 MG, UNK
     Route: 048
  7. CLOZAPINE [Suspect]
     Dosage: 125 MG, QD
     Route: 048
     Dates: start: 20100312
  8. CLOZAPINE [Suspect]
     Dosage: 150 MG, QD
     Route: 048
     Dates: start: 20100315
  9. CLOZAPINE [Suspect]
     Dosage: 275 MG, QD
     Route: 048
     Dates: start: 20100407
  10. FLUNITRAZEPAM [Concomitant]
     Indication: SCHIZOPHRENIA, PARANOID TYPE
     Dosage: 2 MG, UNK
     Route: 048
  11. QUETIAPINE FUMARATE [Concomitant]
     Dosage: 550 MG, UNK
     Route: 048
  12. QUETIAPINE FUMARATE [Concomitant]
     Dosage: 400 MG, UNK
     Route: 048
  13. QUETIAPINE FUMARATE [Concomitant]
     Dosage: 300 MG, UNK
     Route: 048
  14. QUETIAPINE FUMARATE [Concomitant]
     Dosage: 200 MG, UNK
     Route: 048
  15. ARIPIPRAZOLE [Concomitant]
     Dosage: UNK
     Route: 048
  16. CLOZAPINE [Suspect]
     Dosage: 250 MG, QD
     Route: 048
     Dates: start: 20100405
  17. SENNOSIDE [Concomitant]
     Indication: CONSTIPATION
     Dosage: UNK
     Route: 048
     Dates: start: 20100902
  18. QUETIAPINE FUMARATE [Concomitant]
     Dosage: 50 MG, UNK
     Route: 048
     Dates: end: 20100424
  19. CLOZAPINE [Suspect]
     Indication: SCHIZOPHRENIA
     Dosage: 12.5 MG, QD
     Route: 048
     Dates: start: 20100301
  20. CLOZAPINE [Suspect]
     Dosage: 100 MG, QD
     Route: 048
     Dates: start: 20100310
  21. CLOZAPINE [Suspect]
     Dosage: 225 MG, QD
     Route: 048
     Dates: start: 20100402
  22. CLOZAPINE [Suspect]
     Dosage: 600 MG, QD
     Dates: start: 20100514
  23. CLOZAPINE [Suspect]
     Dosage: 25 MG, QD
     Route: 048
     Dates: start: 20100302
  24. CLOZAPINE [Suspect]
     Dosage: 50 MG, QD
     Route: 048
     Dates: start: 20100305
  25. CLOZAPINE [Suspect]
     Dosage: 75 MG, QD
     Route: 048
     Dates: start: 20100308
  26. CLOZAPINE [Suspect]
     Dosage: 175 MG, QD
     Route: 048
     Dates: start: 20100323
  27. CLOZAPINE [Suspect]
     Dosage: 350 MG, QD
     Route: 047
     Dates: start: 20100412
  28. CLOZAPINE [Suspect]
     Dosage: 400 MG, QD
     Route: 047
     Dates: start: 20100414
  29. CLOZAPINE [Suspect]
     Dosage: 600 MG, QD
     Route: 048
     Dates: start: 20100426
  30. SEROQUEL [Concomitant]
     Dosage: UNK
     Route: 048
     Dates: start: 20100301, end: 20100414
  31. FLUNITRAZEPAM [Concomitant]
     Dosage: 2 MG, UNK
     Dates: end: 20120806
  32. NITRAZEPAM [Concomitant]
     Dosage: 5 MG, UNK
     Route: 048
  33. NITRAZEPAM [Concomitant]
     Dosage: 10 MG, UNK
     Route: 048
  34. CLOZAPINE [Suspect]
     Dosage: 500 MG, QD
     Route: 048
     Dates: start: 20100419
  35. BIPERIDEN HYDROCHLORIDE TAB [Concomitant]
     Indication: SCHIZOPHRENIA, PARANOID TYPE
     Dosage: UNK
     Route: 048
     Dates: end: 20100302
  36. QUETIAPINE FUMARATE [Concomitant]
     Dosage: 350 MG, UNK
     Route: 048
  37. QUETIAPINE FUMARATE [Concomitant]
     Dosage: 150 MG, UNK
     Route: 048
  38. CLOZAPINE [Suspect]
     Indication: SCHIZOPHRENIA, PARANOID TYPE
     Dosage: 12.5 MG, QD
     Dates: start: 20110304
  39. CLOZAPINE [Suspect]
     Dosage: 450 MG, QD
     Route: 048
     Dates: start: 20100416
  40. CLOZAPINE [Suspect]
     Dosage: 525 MG, QD
     Route: 048
     Dates: start: 20100423
  41. BLONANSERIN [Concomitant]
     Dosage: 8 MG, UNK
     Route: 048
     Dates: end: 20100304
  42. NITRAZEPAM [Concomitant]
     Indication: SCHIZOPHRENIA, PARANOID TYPE
     Dosage: 10 MG, UNK
     Route: 048
     Dates: start: 20100419
  43. QUETIAPINE FUMARATE [Concomitant]
     Dosage: 475 MG, UNK
     Route: 048
  44. QUETIAPINE FUMARATE [Concomitant]
     Dosage: 100 MG, UNK
     Route: 048

REACTIONS (8)
  - DYSKINESIA [None]
  - ELECTROENCEPHALOGRAM ABNORMAL [None]
  - TREMOR [None]
  - SUICIDE ATTEMPT [None]
  - PYREXIA [None]
  - HEPATIC FUNCTION ABNORMAL [None]
  - INFLAMMATION [None]
  - SALIVARY HYPERSECRETION [None]
